FAERS Safety Report 14082326 (Version 2)
Quarter: 2017Q4

REPORT INFORMATION
  Report Type: Report from Study
  Country: JP (occurrence: JP)
  Receive Date: 20171013
  Receipt Date: 20171013
  Transmission Date: 20180321
  Serious: Yes (Hospitalization, Other)
  Sender: FDA-Public Use
  Company Number: JP-BRISTOL-MYERS SQUIBB COMPANY-10405603

PATIENT
  Age: 55 Year
  Sex: Male

DRUGS (7)
  1. VIRACEPT [Suspect]
     Active Substance: NELFINAVIR MESYLATE
     Indication: PRODUCT USED FOR UNKNOWN INDICATION
     Dosage: 2.5 G, UNK
     Route: 048
     Dates: start: 19991207
  2. VIRACEPT [Suspect]
     Active Substance: NELFINAVIR MESYLATE
     Indication: PRODUCT USED FOR UNKNOWN INDICATION
     Dosage: 1.5 G, UNK
     Route: 048
     Dates: start: 19991026, end: 19991129
  3. VIRACEPT [Suspect]
     Active Substance: NELFINAVIR MESYLATE
     Indication: PRODUCT USED FOR UNKNOWN INDICATION
     Dosage: 2 G, UNK
     Route: 048
     Dates: start: 19991130, end: 19991206
  4. DIFLUCAN [Concomitant]
     Active Substance: FLUCONAZOLE
     Indication: PRODUCT USED FOR UNKNOWN INDICATION
     Dosage: 100 MG, UNK
     Route: 048
     Dates: start: 19990916, end: 19991027
  5. STAVUDINE. [Suspect]
     Active Substance: STAVUDINE
     Indication: ACQUIRED IMMUNODEFICIENCY SYNDROME
     Dosage: 60 MG, UNK
     Route: 048
     Dates: start: 19981012
  6. EPIVIR [Suspect]
     Active Substance: LAMIVUDINE
     Indication: ACQUIRED IMMUNODEFICIENCY SYNDROME
     Dosage: 300 MG, UNK
     Route: 048
     Dates: start: 19991012
  7. VIRACEPT [Suspect]
     Active Substance: NELFINAVIR MESYLATE
     Indication: ACQUIRED IMMUNODEFICIENCY SYNDROME
     Dosage: 1 G, UNK
     Route: 048
     Dates: start: 19991012, end: 19991025

REACTIONS (6)
  - Pneumocystis jirovecii pneumonia [Recovered/Resolved]
  - Mycobacterial infection [Recovering/Resolving]
  - Cytomegalovirus hepatitis [Recovered/Resolved]
  - Hyperlipidaemia [Recovering/Resolving]
  - Systemic candida [Unknown]
  - Cytomegalovirus chorioretinitis [Recovered/Resolved]

NARRATIVE: CASE EVENT DATE: 19990917
